FAERS Safety Report 8291789 (Version 2)
Quarter: 2013Q2

REPORT INFORMATION
  Report Type: Spontaneous
  Country: CA (occurrence: CA)
  Receive Date: 20111214
  Receipt Date: 20130425
  Transmission Date: 20140414
  Serious: Yes (Other)
  Sender: FDA-Public Use
  Company Number: CA-AMGEN-CANSP2011047317

PATIENT
  Age: 49 Year
  Sex: Female
  Weight: 64.85 kg

DRUGS (7)
  1. ENBREL [Suspect]
     Indication: ARTHRITIS
     Dosage: 50 MG, QWK
     Dates: start: 20110819
  2. ENBREL [Suspect]
     Indication: RHEUMATOID ARTHRITIS
  3. ARAVA [Concomitant]
     Indication: ARTHRITIS
     Dosage: 10 MG, QD
     Route: 048
     Dates: start: 20110106
  4. METHOTREXATE [Concomitant]
     Indication: ARTHRITIS
     Dosage: 25 MG, QWK
     Route: 058
     Dates: start: 20110819
  5. TRIDURAL [Concomitant]
     Dosage: 20 MG, QD
     Route: 048
  6. MELOXICAM [Concomitant]
     Dosage: 15 MG, QD
     Route: 048
  7. VITAMIN B 12 [Concomitant]
     Dosage: UNK

REACTIONS (3)
  - Migraine [Recovered/Resolved]
  - Injection site induration [Recovered/Resolved]
  - Injection site haemorrhage [Unknown]
